FAERS Safety Report 10050067 (Version 1)
Quarter: 2014Q2

REPORT INFORMATION
  Report Type: Spontaneous
  Country: FR (occurrence: FR)
  Receive Date: 20140401
  Receipt Date: 20140401
  Transmission Date: 20141212
  Serious: Yes (Hospitalization)
  Sender: FDA-Public Use
  Company Number: FR-SA-2014SA034869

PATIENT
  Age: 63 Year
  Sex: Male

DRUGS (6)
  1. RIFADINE [Suspect]
     Indication: STAPHYLOCOCCAL INFECTION
     Route: 048
     Dates: start: 20131113, end: 20131211
  2. VANCOMYCINE [Suspect]
     Indication: STAPHYLOCOCCAL INFECTION
     Dosage: DOSE: 3-4 G
     Route: 042
     Dates: start: 20131108, end: 20131211
  3. LOVENOX [Concomitant]
     Route: 058
     Dates: start: 20131107
  4. PANTOPRAZOLE [Concomitant]
     Route: 048
     Dates: end: 20131211
  5. ZOLPIDEM [Concomitant]
     Route: 048
     Dates: end: 20131211
  6. NEBIVOLOL [Concomitant]
     Route: 048
     Dates: end: 20131211

REACTIONS (1)
  - Drug reaction with eosinophilia and systemic symptoms [Recovered/Resolved]
